FAERS Safety Report 10159646 (Version 1)
Quarter: 2014Q2

REPORT INFORMATION
  Report Type: Spontaneous
  Country: US (occurrence: US)
  Receive Date: 20140508
  Receipt Date: 20140508
  Transmission Date: 20141212
  Serious: No
  Sender: FDA-Public Use
  Company Number: US-GLAXOSMITHKLINE-A1018799A

PATIENT
  Age: 51 Year
  Sex: Female
  Weight: 81.8 kg

DRUGS (10)
  1. TYKERB [Suspect]
     Indication: BREAST CANCER
     Dosage: 1000MG PER DAY
     Route: 048
  2. HERCEPTIN [Concomitant]
  3. ATENOLOL [Concomitant]
  4. LOSARTAN POTASSIUM [Concomitant]
  5. PREVACID [Concomitant]
  6. KEPPRA [Concomitant]
  7. HYDROCHLOROTHIAZIDE [Concomitant]
  8. SIMVASTATIN [Concomitant]
  9. NEURONTIN [Concomitant]
  10. LOMOTIL [Concomitant]

REACTIONS (2)
  - Headache [Unknown]
  - Diarrhoea [Recovering/Resolving]
